FAERS Safety Report 12527677 (Version 4)
Quarter: 2017Q1

REPORT INFORMATION
  Report Type: Spontaneous
  Country: US (occurrence: US)
  Receive Date: 20160705
  Receipt Date: 20170126
  Transmission Date: 20170428
  Serious: Yes (Congenital Anomaly, Other)
  Sender: FDA-Public Use
  Company Number: PHEH2016US016558

PATIENT
  Sex: Male

DRUGS (1)
  1. ZOFRAN [Suspect]
     Active Substance: ONDANSETRON HYDROCHLORIDE
     Indication: FOETAL EXPOSURE DURING PREGNANCY
     Route: 064

REACTIONS (18)
  - Atrial septal defect [Unknown]
  - Congenital anomaly [Unknown]
  - Neonatal tachypnoea [Unknown]
  - Premature baby [Unknown]
  - Neonatal respiratory distress syndrome [Recovered/Resolved]
  - Foetal exposure during pregnancy [Unknown]
  - Anxiety [Unknown]
  - Ventricular arrhythmia [Unknown]
  - Heart disease congenital [Unknown]
  - Pulmonary valve stenosis [Unknown]
  - Supraventricular tachycardia [Recovered/Resolved]
  - Ventricular septal defect [Unknown]
  - Patent ductus arteriosus [Unknown]
  - Pulmonary hypertension [Unknown]
  - Injury [Unknown]
  - Emotional distress [Unknown]
  - Pain [Unknown]
  - Left-to-right cardiac shunt [Unknown]
